FAERS Safety Report 4644821-9 (Version None)
Quarter: 2005Q2

REPORT INFORMATION
  Report Type: 
  Country: None (occurrence: None)
  Receive Date: 20050422
  Receipt Date: 20050412
  Transmission Date: 20051028
  Serious: Yes (Death, Other)
  Sender: FDA-Public Use
  Company Number: 2005057350

PATIENT
  Sex: Female
  Weight: 0.78 kg

DRUGS (4)
  1. NIFEDIPINE [Suspect]
     Indication: PREMATURE LABOUR
     Dosage: 40 MG PLACENTAL
  2. NIFEDIPINE [Suspect]
     Indication: PREMATURE LABOUR
     Dosage: 40 MG PLACENTAL
  3. INDOMETHACIN [Concomitant]
  4. ATOSIBAN (ATOSIBAN) [Concomitant]

REACTIONS (5)
  - BRADYCARDIA FOETAL [None]
  - DRUG EXPOSURE DURING PREGNANCY [None]
  - INTRA-UTERINE DEATH [None]
  - PLACENTAL INSUFFICIENCY [None]
  - PREMATURE LABOUR [None]
